FAERS Safety Report 19500090 (Version 4)
Quarter: 2021Q3

REPORT INFORMATION
  Report Type: Report from Study
  Country: KR (occurrence: KR)
  Receive Date: 20210706
  Receipt Date: 20210803
  Transmission Date: 20211014
  Serious: Yes (Hospitalization)
  Sender: FDA-Public Use
  Company Number: KR-EISAI MEDICAL RESEARCH-EC-2021-095590

PATIENT
  Age: 71 Year
  Sex: Male
  Weight: 78 kg

DRUGS (10)
  1. KEPPRA [Concomitant]
     Active Substance: LEVETIRACETAM
     Dates: start: 20200807
  2. MACPERAN [Concomitant]
     Active Substance: METOCLOPRAMIDE HYDROCHLORIDE
     Dates: start: 20210524, end: 20210528
  3. PEMBROLIZUMAB. [Suspect]
     Active Substance: PEMBROLIZUMAB
     Indication: GLIOBLASTOMA
     Route: 042
     Dates: start: 20210524, end: 20210524
  4. MYPOL [Concomitant]
     Dates: start: 20210524
  5. MUCOSTA [Concomitant]
     Active Substance: REBAMIPIDE
     Dates: start: 20210323
  6. PEMBROLIZUMAB. [Suspect]
     Active Substance: PEMBROLIZUMAB
     Route: 042
     Dates: start: 20210614
  7. TANTUM [BENZYDAMINE HYDROCHLORIDE] [Concomitant]
     Dates: start: 20210524, end: 20210606
  8. LENVATINIB [Suspect]
     Active Substance: LENVATINIB
     Indication: GLIOBLASTOMA
     Route: 048
     Dates: start: 20210524, end: 20210621
  9. SOLONDO [Concomitant]
     Active Substance: PREDNISOLONE
     Dates: start: 20210520, end: 20210603
  10. LOPERAMIDE [Concomitant]
     Active Substance: LOPERAMIDE
     Dates: start: 20210524

REACTIONS (1)
  - Palmar-plantar erythrodysaesthesia syndrome [Not Recovered/Not Resolved]

NARRATIVE: CASE EVENT DATE: 20210607
